FAERS Safety Report 23985232 (Version 1)
Quarter: 2024Q2

REPORT INFORMATION
  Report Type: Spontaneous
  Country: US (occurrence: US)
  Receive Date: 20240618
  Receipt Date: 20240618
  Transmission Date: 20240716
  Serious: Yes (Other)
  Sender: FDA-Public Use
  Company Number: US-AMGEN-USASP2024115452

PATIENT
  Age: 28 Year
  Sex: Female

DRUGS (5)
  1. RITUXIMAB [Suspect]
     Active Substance: RITUXIMAB
     Indication: Thrombotic thrombocytopenic purpura
     Dosage: UNK
     Route: 065
  2. PREDNISONE [Suspect]
     Active Substance: PREDNISONE
     Indication: Thrombotic thrombocytopenic purpura
     Dosage: UNK
     Route: 065
  3. IMMUNE GLOBULIN NOS [Concomitant]
     Active Substance: IMMUNE GLOBULIN NOS
     Indication: Thrombotic thrombocytopenic purpura
     Dosage: UNK
     Route: 042
  4. BORTEZOMIB [Concomitant]
     Active Substance: BORTEZOMIB
     Indication: Thrombotic thrombocytopenic purpura
     Dosage: UNK
     Route: 065
  5. CAPLACIZUMAB [Concomitant]
     Active Substance: CAPLACIZUMAB
     Indication: Thrombotic thrombocytopenic purpura
     Dosage: 11 MILLIGRAM
     Route: 042

REACTIONS (10)
  - Lactic acidosis [Unknown]
  - Pericardial effusion [Unknown]
  - Cardiac tamponade [Unknown]
  - Gastrointestinal haemorrhage [Unknown]
  - Vaginal haemorrhage [Unknown]
  - Drug ineffective for unapproved indication [Unknown]
  - Anxiety [Unknown]
  - Mental status changes [Unknown]
  - Hypotension [Unknown]
  - Off label use [Unknown]
